FAERS Safety Report 18165235 (Version 8)
Quarter: 2022Q4

REPORT INFORMATION
  Report Type: Report from Study
  Country: IL (occurrence: IL)
  Receive Date: 20200818
  Receipt Date: 20221222
  Transmission Date: 20230113
  Serious: Yes (Hospitalization)
  Sender: FDA-Public Use
  Company Number: IL-ABBVIE-20K-082-3527930-00

PATIENT
  Age: 67 Year
  Sex: Male
  Weight: 86 kg

DRUGS (22)
  1. VENCLEXTA [Suspect]
     Active Substance: VENETOCLAX
     Indication: Chronic lymphocytic leukaemia
     Dosage: LAST ADMIN DATE: 2020
     Route: 048
     Dates: start: 20200805
  2. VENCLEXTA [Suspect]
     Active Substance: VENETOCLAX
     Indication: Chronic lymphocytic leukaemia
     Dosage: 400 MG
     Route: 048
     Dates: start: 20200901, end: 20210115
  3. RITUXIMAB [Suspect]
     Active Substance: RITUXIMAB
     Indication: Chronic lymphocytic leukaemia
     Dosage: 763 MG
     Route: 065
     Dates: start: 20200729, end: 20200729
  4. RITUXIMAB [Suspect]
     Active Substance: RITUXIMAB
     Indication: Chronic lymphocytic leukaemia
     Dosage: 1059 MG
     Route: 065
     Dates: start: 20201001, end: 20201001
  5. RITUXIMAB [Suspect]
     Active Substance: RITUXIMAB
     Indication: Chronic lymphocytic leukaemia
     Dosage: 1029 MG
     Route: 065
     Dates: start: 20201029, end: 20201029
  6. RITUXIMAB [Suspect]
     Active Substance: RITUXIMAB
     Indication: Chronic lymphocytic leukaemia
     Dosage: 1029 MG
     Route: 065
     Dates: start: 20201125, end: 20201125
  7. RITUXIMAB [Suspect]
     Active Substance: RITUXIMAB
     Indication: Chronic lymphocytic leukaemia
     Dosage: 1040 MG
     Route: 065
     Dates: start: 20201223, end: 20201223
  8. ALLOPURINOL [Concomitant]
     Active Substance: ALLOPURINOL
     Indication: Prophylaxis
     Dates: start: 20200805, end: 20200805
  9. ALLOPURINOL [Concomitant]
     Active Substance: ALLOPURINOL
     Indication: Prophylaxis
     Dates: start: 20200805, end: 20200805
  10. ATACAND [Concomitant]
     Active Substance: CANDESARTAN CILEXETIL
     Indication: Hypertension
     Dates: start: 20200805
  11. CANDESARTAN CILEXETIL\HYDROCHLOROTHIAZIDE [Concomitant]
     Active Substance: CANDESARTAN CILEXETIL\HYDROCHLOROTHIAZIDE
     Indication: Hypertension
     Dates: start: 20151013
  12. DISEPTYL FORTE [Concomitant]
     Indication: Antibiotic prophylaxis
     Dates: start: 20200716
  13. LEVOTHYROXINE [Concomitant]
     Active Substance: LEVOTHYROXINE
     Indication: Hypothyroidism
     Dates: start: 20151013
  14. EZETIMIBE [Concomitant]
     Active Substance: EZETIMIBE
     Indication: Blood cholesterol increased
     Dates: start: 20151013
  15. LIPITOR [Concomitant]
     Active Substance: ATORVASTATIN CALCIUM
     Indication: Blood cholesterol increased
     Dates: start: 20200805
  16. PROPAFENONE HYDROCHLORIDE [Concomitant]
     Active Substance: PROPAFENONE HYDROCHLORIDE
     Indication: Arrhythmia
     Dates: start: 20200805
  17. ALFUZOSIN [Concomitant]
     Active Substance: ALFUZOSIN
     Indication: Benign prostatic hyperplasia
     Dates: start: 20200805
  18. ZOVIRAX [Concomitant]
     Active Substance: ACYCLOVIR
     Indication: Prophylaxis
     Dates: start: 20201001
  19. ALLOPURINOL [Concomitant]
     Active Substance: ALLOPURINOL
     Indication: Prophylaxis
     Dates: start: 20200729, end: 20200729
  20. COVID-19 vaccine [Concomitant]
     Indication: COVID-19 prophylaxis
     Dosage: 1ST DOSE
     Route: 030
     Dates: start: 20210106, end: 20210106
  21. COVID-19 vaccine [Concomitant]
     Indication: COVID-19 prophylaxis
     Dosage: 2ND DOSE
     Route: 030
     Dates: start: 20210128, end: 20210128
  22. BISOPROLOL FUMARATE [Concomitant]
     Active Substance: BISOPROLOL FUMARATE
     Indication: Hypertension
     Dosage: 2.5 MG
     Dates: start: 20200816

REACTIONS (5)
  - COVID-19 [Recovered/Resolved]
  - Herpes zoster [Recovered/Resolved]
  - Visual impairment [Recovered/Resolved]
  - Blood creatinine increased [Recovered/Resolved]
  - Cough [Recovered/Resolved]

NARRATIVE: CASE EVENT DATE: 20200816
